FAERS Safety Report 21992265 (Version 2)
Quarter: 2023Q1

REPORT INFORMATION
  Report Type: Spontaneous
  Country: AT (occurrence: AT)
  Receive Date: 20230214
  Receipt Date: 20230319
  Transmission Date: 20230418
  Serious: Yes (Other)
  Sender: FDA-Public Use
  Company Number: AT-AMGEN-AUTSP2023023545

PATIENT
  Age: 54 Year
  Sex: Male

DRUGS (1)
  1. NPLATE [Suspect]
     Active Substance: ROMIPLOSTIM
     Indication: Immune thrombocytopenia
     Dosage: 10 MICROGRAM/KG QWK
     Route: 058

REACTIONS (5)
  - Thrombocytopenia [Recovering/Resolving]
  - Drug ineffective [Unknown]
  - Agitation [Unknown]
  - Dyspnoea [Unknown]
  - Chest pain [Unknown]
